FAERS Safety Report 6411753-5 (Version None)
Quarter: 2009Q4

REPORT INFORMATION
  Report Type: 
  Country: None (occurrence: None)
  Receive Date: 20091020
  Receipt Date: 20091007
  Transmission Date: 20100525
  Serious: Yes (Death, Hospitalization)
  Sender: FDA-Public Use
  Company Number: 2009AC000187

PATIENT
  Age: 85 Year
  Sex: Female

DRUGS (24)
  1. DIGOXIN [Suspect]
     Indication: ATRIAL FIBRILLATION
     Dosage: 125 MCG; QD; PO
     Route: 048
     Dates: start: 20070302, end: 20070426
  2. PROTONIX [Concomitant]
  3. DEPAKOTE [Concomitant]
  4. COREG [Concomitant]
  5. ASPIRIN [Concomitant]
  6. LASIX [Concomitant]
  7. CENTRUM SILVER [Concomitant]
  8. MEGACE [Concomitant]
  9. COUMADIN [Concomitant]
  10. CARTIA XT [Concomitant]
  11. BIOTIN [Concomitant]
  12. COENZYME Q10 [Concomitant]
  13. L-CARITINE [Concomitant]
  14. CALAN [Concomitant]
  15. POTASSIUM CHLORIDE [Concomitant]
  16. HYDRALAZINE HCL [Concomitant]
  17. DEMADEX [Concomitant]
  18. BIAXIN [Concomitant]
  19. ASPIRIN [Concomitant]
  20. LASIX [Concomitant]
  21. COREG [Concomitant]
  22. DEPAKOTE [Concomitant]
  23. ROCEPHIN [Concomitant]
  24. MULTI-VITAMIN [Concomitant]

REACTIONS (22)
  - ASTHENIA [None]
  - ATRIAL FIBRILLATION [None]
  - CARDIAC FAILURE CONGESTIVE [None]
  - CARDIOGENIC SHOCK [None]
  - CARDIOMYOPATHY [None]
  - CHRONIC OBSTRUCTIVE PULMONARY DISEASE [None]
  - DEHYDRATION [None]
  - DIARRHOEA [None]
  - DYSPNOEA [None]
  - ECONOMIC PROBLEM [None]
  - GASTROOESOPHAGEAL REFLUX DISEASE [None]
  - HYPERCOAGULATION [None]
  - HYPOKALAEMIA [None]
  - MULTIPLE INJURIES [None]
  - NAUSEA [None]
  - PALPITATIONS [None]
  - PLEURAL EFFUSION [None]
  - PNEUMONIA [None]
  - SURGERY [None]
  - THERAPEUTIC AGENT TOXICITY [None]
  - URINARY TRACT INFECTION [None]
  - VOMITING [None]
